FAERS Safety Report 5928627-6 (Version None)
Quarter: 2008Q3

REPORT INFORMATION
  Report Type: 
  Country: None (occurrence: None)
  Receive Date: 20080923
  Receipt Date: 20080129
  Transmission Date: 20090109
  Serious: Yes (Hospitalization, Disabling)
  Sender: FDA-Public Use
  Company Number: WAES 0801USA05802

PATIENT
  Age: 81 Year
  Sex: Female

DRUGS (5)
  1. VYTORIN [Suspect]
     Indication: BLOOD CHOLESTEROL INCREASED
     Dosage: 10-20 MG/DAILY/PO
     Route: 048
     Dates: start: 20060503, end: 20060901
  2. DYNACIRC [Concomitant]
  3. HYDRODIURIL [Concomitant]
  4. VASOTEC [Concomitant]
  5. ZYRTEC [Concomitant]

REACTIONS (1)
  - MYALGIA [None]
